FAERS Safety Report 15187096 (Version 1)
Quarter: 2018Q3

REPORT INFORMATION
  Report Type: Report from Study
  Country: US (occurrence: US)
  Receive Date: 20180723
  Receipt Date: 20180723
  Transmission Date: 20181010
  Serious: Yes (Hospitalization)
  Sender: FDA-Public Use
  Company Number: US-EXELIXIS-CABO-17011833

PATIENT
  Sex: Female

DRUGS (12)
  1. XGEVA [Concomitant]
     Active Substance: DENOSUMAB
  2. OMEPRAZOLE. [Concomitant]
     Active Substance: OMEPRAZOLE
  3. BYSTOLIC [Concomitant]
     Active Substance: NEBIVOLOL HYDROCHLORIDE
  4. CALCIUM 500+D [Concomitant]
     Active Substance: CALCIUM\VITAMIN D
  5. ATORVASTATIN CALCIUM. [Concomitant]
     Active Substance: ATORVASTATIN CALCIUM
  6. ASPIRIN. [Concomitant]
     Active Substance: ASPIRIN
  7. SYNTHROID [Concomitant]
     Active Substance: LEVOTHYROXINE SODIUM
  8. BENICAR [Concomitant]
     Active Substance: OLMESARTAN MEDOXOMIL
  9. NORCO [Concomitant]
     Active Substance: ACETAMINOPHEN\HYDROCODONE BITARTRATE
  10. CABOMETYX [Suspect]
     Active Substance: CABOZANTINIB S-MALATE
     Indication: RENAL CANCER
     Dosage: 40 MG, QD
     Route: 048
     Dates: start: 20170408
  11. TRAMADOL. [Concomitant]
     Active Substance: TRAMADOL
  12. PROTONIX [Concomitant]
     Active Substance: PANTOPRAZOLE SODIUM

REACTIONS (8)
  - Dehydration [Unknown]
  - Diarrhoea [Unknown]
  - Insomnia [Unknown]
  - Animal scratch [Unknown]
  - Muscle spasms [Unknown]
  - Pharyngitis streptococcal [Recovered/Resolved]
  - Muscular weakness [Unknown]
  - Abdominal discomfort [Unknown]
